FAERS Safety Report 18729651 (Version 2)
Quarter: 2021Q3

REPORT INFORMATION
  Report Type: Spontaneous
  Country: US (occurrence: US)
  Receive Date: 20210112
  Receipt Date: 20210824
  Transmission Date: 20211014
  Serious: Yes (Hospitalization, Other)
  Sender: FDA-Public Use
  Company Number: US-ASTRAZENECA-2020SF75923

PATIENT
  Sex: Female

DRUGS (45)
  1. PRILOSEC [Suspect]
     Active Substance: OMEPRAZOLE MAGNESIUM
     Indication: GASTROOESOPHAGEAL REFLUX DISEASE
     Route: 048
  2. BENADRYL [Concomitant]
     Active Substance: DIPHENHYDRAMINE HYDROCHLORIDE
     Indication: HYPERSENSITIVITY
  3. MIRALAX [Concomitant]
     Active Substance: POLYETHYLENE GLYCOL 3350
  4. ACYCLOVIR. [Concomitant]
     Active Substance: ACYCLOVIR
  5. IBUPROFEN. [Concomitant]
     Active Substance: IBUPROFEN
  6. DOCUSATE [Concomitant]
     Active Substance: DOCUSATE
  7. PREVACID [Suspect]
     Active Substance: LANSOPRAZOLE
     Indication: GASTROOESOPHAGEAL REFLUX DISEASE
     Route: 065
  8. OLMESARTAN [Concomitant]
     Active Substance: OLMESARTAN
     Indication: BLOOD PRESSURE ABNORMAL
     Dates: start: 2021
  9. TRAMADOL. [Concomitant]
     Active Substance: TRAMADOL
     Indication: PAIN
     Dates: start: 2013
  10. FOLIC ACID. [Concomitant]
     Active Substance: FOLIC ACID
  11. CLONIDINE. [Concomitant]
     Active Substance: CLONIDINE
  12. TYLENOL [Concomitant]
     Active Substance: ACETAMINOPHEN
     Indication: PAIN
  13. SULFAMETHOXAZOLE [Concomitant]
     Active Substance: SULFAMETHOXAZOLE
  14. DITROPAN [Concomitant]
     Active Substance: OXYBUTYNIN CHLORIDE
  15. ELESTAT [Concomitant]
     Active Substance: EPINASTINE HYDROCHLORIDE
  16. RANITIDINE. [Concomitant]
     Active Substance: RANITIDINE
  17. CARVEDILOL. [Concomitant]
     Active Substance: CARVEDILOL
  18. NEXIUM [Suspect]
     Active Substance: ESOMEPRAZOLE MAGNESIUM
     Indication: GASTROOESOPHAGEAL REFLUX DISEASE
     Route: 048
  19. PROTONIX [Suspect]
     Active Substance: PANTOPRAZOLE SODIUM
     Indication: GASTROOESOPHAGEAL REFLUX DISEASE
     Route: 065
  20. HYDRALAZINE [Concomitant]
     Active Substance: HYDRALAZINE HYDROCHLORIDE
     Indication: BLOOD PRESSURE MEASUREMENT
     Dates: start: 2017
  21. PHENAZOPYRID [Concomitant]
  22. NIFEDIPINE. [Concomitant]
     Active Substance: NIFEDIPINE
  23. RENVELA [Concomitant]
     Active Substance: SEVELAMER CARBONATE
  24. PROMETHAZINE [Concomitant]
     Active Substance: PROMETHAZINE HYDROCHLORIDE
  25. AMOXICILLIN. [Concomitant]
     Active Substance: AMOXICILLIN
     Indication: INFECTION
  26. GENERESS FE [Concomitant]
     Active Substance: ETHINYL ESTRADIOL\NORETHINDRONE
  27. CIPROFLOXACIN. [Concomitant]
     Active Substance: CIPROFLOXACIN
  28. SEVELAMER [Concomitant]
     Active Substance: SEVELAMER
  29. TORSEMIDE. [Concomitant]
     Active Substance: TORSEMIDE
     Indication: BLOOD PRESSURE MEASUREMENT
     Dates: start: 2017
  30. ALBUTEROL. [Concomitant]
     Active Substance: ALBUTEROL
  31. ONDENSTRON [Concomitant]
  32. SUMATRIPTAN. [Concomitant]
     Active Substance: SUMATRIPTAN
  33. METOPROLOL. [Concomitant]
     Active Substance: METOPROLOL
  34. NITROFURANTOIN. [Concomitant]
     Active Substance: NITROFURANTOIN
  35. LABETOLOL [Concomitant]
     Active Substance: LABETALOL HYDROCHLORIDE
  36. PRILOSEC [Suspect]
     Active Substance: OMEPRAZOLE MAGNESIUM
     Indication: GASTROOESOPHAGEAL REFLUX DISEASE
     Route: 048
     Dates: start: 200001, end: 201512
  37. BUMETANIDE. [Concomitant]
     Active Substance: BUMETANIDE
     Indication: FLUID RETENTION
     Dates: start: 2017
  38. FUROSEMIDE. [Concomitant]
     Active Substance: FUROSEMIDE
     Indication: OEDEMA
     Dates: start: 2020
  39. PREVACID [Suspect]
     Active Substance: LANSOPRAZOLE
     Indication: GASTROOESOPHAGEAL REFLUX DISEASE
     Route: 065
     Dates: start: 200001, end: 201512
  40. LOSARTAN. [Concomitant]
     Active Substance: LOSARTAN
     Indication: BLOOD PRESSURE ABNORMAL
     Dates: start: 2021
  41. DETROL [Concomitant]
     Active Substance: TOLTERODINE TARTRATE
  42. LACTULOSE. [Concomitant]
     Active Substance: LACTULOSE
  43. METOLAZONE. [Concomitant]
     Active Substance: METOLAZONE
  44. CALCITRIOL. [Concomitant]
     Active Substance: CALCITRIOL
  45. ERGOCALCIFEROL. [Concomitant]
     Active Substance: ERGOCALCIFEROL

REACTIONS (6)
  - Renal failure [Unknown]
  - Nephrogenic anaemia [Unknown]
  - Acute kidney injury [Unknown]
  - Chronic kidney disease [Not Recovered/Not Resolved]
  - End stage renal disease [Not Recovered/Not Resolved]
  - Hyperparathyroidism secondary [Unknown]
